FAERS Safety Report 10264843 (Version 1)
Quarter: 2014Q2

REPORT INFORMATION
  Report Type: Spontaneous
  Country: GB (occurrence: None)
  Receive Date: 20140624
  Receipt Date: 20140624
  Transmission Date: 20141212
  Serious: Yes (Other)
  Sender: FDA-Public Use
  Company Number: AUR-APL-2014-06614

PATIENT
  Age: 35 Year
  Sex: Male

DRUGS (1)
  1. NAPROXEN [Suspect]
     Indication: BACK INJURY

REACTIONS (3)
  - Crohn^s disease [None]
  - Tinnitus [None]
  - Appendicitis perforated [None]
